FAERS Safety Report 6747675-X (Version None)
Quarter: 2010Q2

REPORT INFORMATION
  Report Type: 
  Country: None (occurrence: None)
  Receive Date: 20100528
  Receipt Date: 20100518
  Transmission Date: 20101027
  Serious: Yes (Hospitalization, Other)
  Sender: FDA-Public Use
  Company Number: TW-JNJCH-2010012724

PATIENT
  Age: 44 Year
  Sex: Male

DRUGS (2)
  1. DIPHENHYDRAMINE HCL [Suspect]
     Indication: INSOMNIA
     Dosage: TEXT:180 MG UNSPECIFIED DAILY 5 DIVIDED DOSES
     Route: 042
  2. NEFOPAM [Suspect]
     Indication: HEADACHE
     Dosage: TEXT:120MG UNSPECIFIED DAILY 5 DIVIDED DOSES
     Route: 042

REACTIONS (9)
  - CHOLINERGIC SYNDROME [None]
  - DELIRIUM [None]
  - DRUG ABUSE [None]
  - DRUG TOLERANCE [None]
  - EXTRAPYRAMIDAL DISORDER [None]
  - HEADACHE [None]
  - HEPATIC ENZYME INCREASED [None]
  - PSYCHOTIC DISORDER [None]
  - WITHDRAWAL SYNDROME [None]
